FAERS Safety Report 6781638-3 (Version None)
Quarter: 2010Q2

REPORT INFORMATION
  Report Type: 
  Country: None (occurrence: None)
  Receive Date: 20100621
  Receipt Date: 20100610
  Transmission Date: 20101027
  Serious: Yes (Other)
  Sender: FDA-Public Use
  Company Number: US-BAYER-201013007NA

PATIENT
  Age: 62 Year
  Sex: Male
  Weight: 161 kg

DRUGS (8)
  1. MAGNEVIST [Suspect]
     Indication: NUCLEAR MAGNETIC RESONANCE IMAGING ABDOMINAL
     Route: 042
     Dates: start: 20040329, end: 20040329
  2. MAGNEVIST [Suspect]
     Dates: start: 20010302, end: 20010302
  3. OMNISCAN [Suspect]
     Indication: IMAGING PROCEDURE
  4. OPTIMARK [Suspect]
     Indication: NUCLEAR MAGNETIC RESONANCE IMAGING
     Dosage: AS USED: 20 ML
     Dates: start: 20060222, end: 20060222
  5. MULTIHANCE [Suspect]
     Indication: IMAGING PROCEDURE
  6. PROHANCE [Suspect]
     Indication: IMAGING PROCEDURE
  7. WARFARIN [Concomitant]
     Dates: start: 20020101
  8. AVAPRO [Concomitant]
     Dates: start: 20030101, end: 20060101

REACTIONS (16)
  - ARTHRALGIA [None]
  - BACK PAIN [None]
  - DEFORMITY [None]
  - GENERAL PHYSICAL HEALTH DETERIORATION [None]
  - HYPERHIDROSIS [None]
  - HYPOAESTHESIA [None]
  - NEPHROGENIC SYSTEMIC FIBROSIS [None]
  - OEDEMA PERIPHERAL [None]
  - PAIN IN EXTREMITY [None]
  - SCAR [None]
  - SKIN HYPERPIGMENTATION [None]
  - SKIN HYPERTROPHY [None]
  - SKIN INDURATION [None]
  - THROMBOSIS [None]
  - TREMOR [None]
  - VISUAL ACUITY REDUCED [None]
